FAERS Safety Report 8800770 (Version 2)
Quarter: 2012Q4

REPORT INFORMATION
  Report Type: 
  Country: US (occurrence: US)
  Receive Date: 20120921
  Receipt Date: 20121016
  Transmission Date: 20130627
  Serious: Yes (Hospitalization, Other)
  Sender: FDA-Public Use
  Company Number: US-CELGENEUS-163-21880-12081432

PATIENT
  Sex: Female

DRUGS (3)
  1. REVLIMID [Suspect]
     Indication: MULTIPLE MYELOMA
     Dosage: 25 Milligram
     Route: 048
     Dates: start: 201205, end: 201206
  2. REVLIMID [Suspect]
     Dosage: 15 Milligram
     Route: 048
     Dates: start: 201208
  3. PLAVIX [Concomitant]
     Indication: PERIPHERAL ARTERIAL DISEASE
     Route: 048

REACTIONS (2)
  - Cholecystitis [Recovered/Resolved]
  - Diarrhoea [Recovered/Resolved]
